FAERS Safety Report 16871461 (Version 1)
Quarter: 2019Q4

REPORT INFORMATION
  Report Type: Spontaneous
  Country: US (occurrence: US)
  Receive Date: 20191001
  Receipt Date: 20191001
  Transmission Date: 20200122
  Serious: No
  Sender: FDA-Public Use
  Company Number: US-SUN PHARMACEUTICAL INDUSTRIES LTD-2019R1-206806

PATIENT
  Sex: Female

DRUGS (1)
  1. LORATADINE. [Suspect]
     Active Substance: LORATADINE
     Indication: EAR INFECTION
     Dosage: UNK
     Route: 065

REACTIONS (3)
  - Ear pain [Unknown]
  - Pharyngeal swelling [Recovered/Resolved]
  - Swelling [Recovered/Resolved]
